FAERS Safety Report 4848537-5 (Version None)
Quarter: 2005Q4

REPORT INFORMATION
  Report Type: 
  Country: None (occurrence: None)
  Receive Date: 20051206
  Receipt Date: 20051117
  Transmission Date: 20060501
  Serious: Yes (Life-Threatening)
  Sender: FDA-Public Use
  Company Number: 000#8#2005-00791

PATIENT
  Age: 62 Year
  Sex: Male

DRUGS (17)
  1. GLYCERYL TRINITRATE, SOLUTION (GLYCERYL TRINITRATE) [Suspect]
     Indication: HYPERTENSIVE CRISIS
     Dosage: 1000 NG/KG/MIN INTRAVENOUS DRIP
     Route: 041
  2. NITROPRUSSIDE (NITROPRUSSIDE) [Suspect]
     Indication: HYPERTENSIVE CRISIS
     Dosage: 3000 NG/KG/MIN INTRAVENOUS DRIP
     Route: 041
  3. LABETALOL HCL [Suspect]
     Indication: LABILE HYPERTENSION
     Dosage: 100 MG INTRAVENOUS BOLUS; ORAL
     Route: 040
  4. ISOSORBIDE MONONITRATE [Concomitant]
  5. AMLODIPINE BESYLATE (AMLODIPINE BESILATE) [Concomitant]
  6. ENALAPRIL MALEATE [Concomitant]
  7. ATORVASTATIN CALCIUM [Concomitant]
  8. GEMFIBROZIL [Concomitant]
  9. ASPIRIN [Concomitant]
  10. POTASSIUM (POTASSIUM) [Concomitant]
  11. FLUOXETINE [Concomitant]
  12. FENTANYL [Concomitant]
  13. LIDOCAINE HCL INJ [Concomitant]
  14. PROPOFOL [Concomitant]
  15. ROCURONIUM (ROCURONIUM) [Concomitant]
  16. ISOFLURANE [Concomitant]
  17. ESMOLOL (ESMOLOL) [Concomitant]

REACTIONS (2)
  - DRUG INEFFECTIVE [None]
  - PHAEOCHROMOCYTOMA [None]
